FAERS Safety Report 19313110 (Version 1)
Quarter: 2021Q2

REPORT INFORMATION
  Report Type: Spontaneous
  Country: US (occurrence: US)
  Receive Date: 20210526
  Receipt Date: 20210526
  Transmission Date: 20210717
  Serious: No
  Sender: FDA-Public Use
  Company Number: None

PATIENT
  Age: 48 Year
  Sex: Female

DRUGS (10)
  1. BUMETANIDE. [Concomitant]
     Active Substance: BUMETANIDE
  2. NITROGLYCERIN. [Concomitant]
     Active Substance: NITROGLYCERIN
  3. NORVASC [Concomitant]
     Active Substance: AMLODIPINE BESYLATE
  4. AMBRISENTAN, 5 MG [Suspect]
     Active Substance: AMBRISENTAN
     Indication: PULMONARY ARTERIAL HYPERTENSION
     Route: 048
  5. FUROSEMIDE. [Concomitant]
     Active Substance: FUROSEMIDE
  6. COREG [Concomitant]
     Active Substance: CARVEDILOL
  7. HYDRALAZINE [Concomitant]
     Active Substance: HYDRALAZINE HYDROCHLORIDE
  8. COZAAR [Concomitant]
     Active Substance: LOSARTAN POTASSIUM
  9. CLONIDINE. [Concomitant]
     Active Substance: CLONIDINE
  10. TADALAFIL. [Suspect]
     Active Substance: TADALAFIL
     Indication: PULMONARY ARTERIAL HYPERTENSION
     Route: 048

REACTIONS (3)
  - Dyspnoea [None]
  - Intentional product use issue [None]
  - Extra dose administered [None]

NARRATIVE: CASE EVENT DATE: 20210423
